FAERS Safety Report 20839958 (Version 1)
Quarter: 2022Q2

REPORT INFORMATION
  Report Type: Spontaneous
  Country: PT (occurrence: PT)
  Receive Date: 20220517
  Receipt Date: 20220517
  Transmission Date: 20220720
  Serious: Yes (Death, Hospitalization, Other)
  Sender: FDA-Public Use
  Company Number: PT-GILEAD-2022-0580704

PATIENT
  Age: 68 Year
  Sex: Male

DRUGS (11)
  1. EPCLUSA [Suspect]
     Active Substance: SOFOSBUVIR\VELPATASVIR
     Indication: Chronic hepatitis C
     Dosage: UNK
     Route: 065
     Dates: start: 201907
  2. EPCLUSA [Suspect]
     Active Substance: SOFOSBUVIR\VELPATASVIR
     Dosage: UNK
     Route: 065
     Dates: start: 20200310
  3. RIBAVIRIN [Concomitant]
     Active Substance: RIBAVIRIN
     Dosage: UNK
     Dates: start: 2019
  4. LACTULOSE [Concomitant]
     Active Substance: LACTULOSE
     Dosage: 15 UNK
  5. SPIRONOLACTONE [Concomitant]
     Active Substance: SPIRONOLACTONE
     Dosage: UNK
  6. NEUROBION FORTE [Concomitant]
     Active Substance: CYANOCOBALAMIN\PYRIDOXINE HYDROCHLORIDE\THIAMINE DISULFIDE
  7. FENOFIBRATE [Concomitant]
     Active Substance: FENOFIBRATE
  8. VITAMINS NOS [Concomitant]
     Active Substance: VITAMINS
  9. PYRIDOXINE [Concomitant]
     Active Substance: PYRIDOXINE
  10. ACETAMINOPHEN [Concomitant]
     Active Substance: ACETAMINOPHEN
  11. THIAMINE [Concomitant]
     Active Substance: THIAMINE

REACTIONS (25)
  - General physical health deterioration [Fatal]
  - Altered state of consciousness [Unknown]
  - Hepatic mass [Unknown]
  - Hepatic encephalopathy [Unknown]
  - Pancreatic atrophy [Unknown]
  - Ascites [Unknown]
  - Portal vein thrombosis [Unknown]
  - Pneumonia aspiration [Unknown]
  - Hepatic cancer [Unknown]
  - Respiratory failure [Unknown]
  - Atrial fibrillation [Unknown]
  - Gait disturbance [Unknown]
  - Ultrasound abdomen abnormal [Unknown]
  - Malaise [Unknown]
  - Collateral circulation [Unknown]
  - Pleural effusion [Unknown]
  - Aspiration pleural cavity [Unknown]
  - Pulmonary mass [Unknown]
  - Intra-abdominal fluid collection [Unknown]
  - Weight increased [Unknown]
  - Oedema [Unknown]
  - Atelectasis [Unknown]
  - Hypercalcaemia [Unknown]
  - Dyspnoea [Unknown]
  - Asthenia [Unknown]

NARRATIVE: CASE EVENT DATE: 20190926
